FAERS Safety Report 12448370 (Version 1)
Quarter: 2016Q2

REPORT INFORMATION
  Report Type: Report from Study
  Country: US (occurrence: US)
  Receive Date: 20160608
  Receipt Date: 20160608
  Transmission Date: 20160815
  Serious: Yes (Hospitalization)
  Sender: FDA-Public Use
  Company Number: US-ABBVIE-16K-163-1641091-00

PATIENT
  Age: 78 Year
  Sex: Male

DRUGS (1)
  1. HUMIRA [Suspect]
     Active Substance: ADALIMUMAB
     Indication: PSORIATIC ARTHROPATHY
     Route: 058
     Dates: start: 20160428

REACTIONS (8)
  - Cough [Recovering/Resolving]
  - Musculoskeletal pain [Recovering/Resolving]
  - Drug dose omission [Unknown]
  - Dyspnoea [Recovered/Resolved]
  - Device issue [Unknown]
  - Injection site pain [Not Recovered/Not Resolved]
  - Back pain [Recovering/Resolving]
  - Pain in extremity [Recovering/Resolving]

NARRATIVE: CASE EVENT DATE: 20160428
